FAERS Safety Report 8850304 (Version 1)
Quarter: 2012Q4

REPORT INFORMATION
  Report Type: 
  Country: FR (occurrence: FR)
  Receive Date: 20121019
  Receipt Date: 20121019
  Transmission Date: 20130627
  Serious: Yes (Life-Threatening, Hospitalization, Other)
  Sender: FDA-Public Use
  Company Number: PHHY2012FR093176

PATIENT
  Age: 18 Year
  Sex: Male

DRUGS (4)
  1. VOLTARENE [Suspect]
     Dosage: UNK
     Dates: start: 20120806
  2. PARACETAMOL [Suspect]
     Dosage: UNK
     Dates: start: 20120806
  3. ZOLPIDEM [Suspect]
     Route: 048
     Dates: start: 20120806
  4. LAMALINE [Suspect]
     Dates: start: 20120806

REACTIONS (4)
  - Renal failure acute [Recovered/Resolved]
  - Suicide attempt [Unknown]
  - Cell death [Unknown]
  - Alcohol use [None]
